FAERS Safety Report 10040487 (Version 1)
Quarter: 2014Q1

REPORT INFORMATION
  Report Type: Spontaneous
  Country: US (occurrence: US)
  Receive Date: 20140327
  Receipt Date: 20140327
  Transmission Date: 20141002
  Serious: No
  Sender: FDA-Public Use
  Company Number: US-009507513-1403USA008246

PATIENT
  Age: 82 Year
  Sex: Female

DRUGS (3)
  1. COSOPT [Suspect]
     Indication: INTRAOCULAR PRESSURE TEST ABNORMAL
     Dosage: 1 DROP IN EACH EYE TWICE A DAY
     Route: 047
     Dates: start: 201311
  2. LUMIGAN [Suspect]
     Dosage: UNK
  3. ALPHAGAN [Suspect]
     Dosage: UNK

REACTIONS (1)
  - Chromaturia [Not Recovered/Not Resolved]
